FAERS Safety Report 25098892 (Version 2)
Quarter: 2025Q3

REPORT INFORMATION
  Report Type: Spontaneous
  Country: EC (occurrence: EC)
  Receive Date: 20250320
  Receipt Date: 20250810
  Transmission Date: 20251020
  Serious: Yes (Hospitalization)
  Sender: ALEXION PHARMACEUTICALS
  Company Number: EC-AstraZeneca-CH-00827046A

PATIENT
  Sex: Female

DRUGS (1)
  1. XIGDUO XR [Suspect]
     Active Substance: DAPAGLIFLOZIN PROPANEDIOL\METFORMIN HYDROCHLORIDE

REACTIONS (1)
  - Metabolic acidosis [Recovering/Resolving]
